FAERS Safety Report 7986725-X (Version None)
Quarter: 2011Q4

REPORT INFORMATION
  Report Type: 
  Country: None (occurrence: None)
  Receive Date: 20111216
  Receipt Date: 20110511
  Transmission Date: 20120403
  Serious: Yes (Death, Other)
  Sender: FDA-Public Use
  Company Number: US-BRISTOL-MYERS SQUIBB COMPANY-15555063

PATIENT
  Age: 3 Decade
  Sex: Male

DRUGS (3)
  1. ABILIFY [Suspect]
     Indication: MAJOR DEPRESSION
     Dosage: TWO YEAR AGO,
  2. SEROQUEL [Suspect]
  3. CYMBALTA [Suspect]

REACTIONS (2)
  - COMPLETED SUICIDE [None]
  - DEPRESSION [None]
